FAERS Safety Report 7385506-8 (Version None)
Quarter: 2011Q1

REPORT INFORMATION
  Report Type: 
  Country: None (occurrence: None)
  Receive Date: 20110331
  Receipt Date: 20110328
  Transmission Date: 20110831
  Serious: Yes (Life-Threatening)
  Sender: FDA-Public Use
  Company Number: US-ASTRAZENECA-2006UW00791

PATIENT
  Sex: Male
  Weight: 75.7 kg

DRUGS (7)
  1. SEROQUEL [Suspect]
     Route: 048
     Dates: start: 20030501, end: 20031201
  2. ENALAPRIL MALEATE [Concomitant]
     Dates: start: 20030707
  3. SEROQUEL [Suspect]
     Dosage: 25 MG TO 100 MG
     Route: 048
     Dates: start: 20030527
  4. TRILEPTAL [Concomitant]
     Dosage: 150 MG TO 300 MG
     Dates: start: 20030813
  5. GLIPIZIDE [Concomitant]
     Dates: start: 20031130
  6. ZYPREXA [Suspect]
     Route: 048
     Dates: start: 20020501, end: 20030601
  7. GEMFIBROZIL [Concomitant]
     Dates: start: 20030707

REACTIONS (2)
  - DIABETIC COMPLICATION [None]
  - DIABETES MELLITUS [None]
